FAERS Safety Report 16067840 (Version 1)
Quarter: 2019Q1

REPORT INFORMATION
  Report Type: Report from Study
  Country: CO (occurrence: CO)
  Receive Date: 20190313
  Receipt Date: 20190313
  Transmission Date: 20190418
  Serious: Yes (Hospitalization)
  Sender: FDA-Public Use
  Company Number: CO-ACTELION-A-CH2019-186746

PATIENT
  Age: 42 Year
  Sex: Male
  Weight: 100 kg

DRUGS (3)
  1. RIOCIGUAT. [Concomitant]
     Active Substance: RIOCIGUAT
     Dosage: UNK
     Route: 048
  2. OPSUMIT [Suspect]
     Active Substance: MACITENTAN
     Indication: PULMONARY ARTERIAL HYPERTENSION
     Dosage: 10 MG, QD
     Route: 048
     Dates: start: 20180315
  3. TREPROSTINIL. [Concomitant]
     Active Substance: TREPROSTINIL
     Dosage: UNK
     Route: 042

REACTIONS (3)
  - Hypotension [Not Recovered/Not Resolved]
  - Catheterisation cardiac [Unknown]
  - Fluid retention [Not Recovered/Not Resolved]

NARRATIVE: CASE EVENT DATE: 201902
